FAERS Safety Report 19447150 (Version 3)
Quarter: 2021Q3

REPORT INFORMATION
  Report Type: Spontaneous
  Country: US (occurrence: US)
  Receive Date: 20210622
  Receipt Date: 20210728
  Transmission Date: 20211014
  Serious: Yes (Hospitalization)
  Sender: FDA-Public Use
  Company Number: US-HORMOSAN PHARMA GMBH-2021-09563

PATIENT
  Age: 56 Year
  Sex: Female
  Weight: 68.03 kg

DRUGS (2)
  1. QUETIAPINE TABLETS USP, 25 MG [Suspect]
     Active Substance: QUETIAPINE FUMARATE
     Indication: PRODUCT USED FOR UNKNOWN INDICATION
     Dosage: UNK,FOR ABOUT SIX MONTHS
     Route: 048
  2. QUETIAPINE TABLETS USP, 25 MG [Suspect]
     Active Substance: QUETIAPINE FUMARATE
     Dosage: 25 MILLIGRAM, QID
     Route: 048
     Dates: start: 2021

REACTIONS (6)
  - Treatment noncompliance [Unknown]
  - Psychotic disorder [Unknown]
  - Product quality issue [Unknown]
  - Eye discharge [Unknown]
  - Skin discolouration [Unknown]
  - Paranoia [Unknown]

NARRATIVE: CASE EVENT DATE: 2021
